FAERS Safety Report 14825780 (Version 3)
Quarter: 2023Q1

REPORT INFORMATION
  Report Type: Spontaneous
  Country: IT (occurrence: IT)
  Receive Date: 20180430
  Receipt Date: 20230307
  Transmission Date: 20230417
  Serious: Yes (Life-Threatening, Hospitalization, Other)
  Sender: FDA-Public Use
  Company Number: IT-SANOFI-AVENTIS-2010SA073456

PATIENT
  Age: 44 Year
  Sex: Male

DRUGS (11)
  1. AMOXICILLIN\CLAVULANIC ACID [Suspect]
     Active Substance: AMOXICILLIN\CLAVULANIC ACID
     Indication: Asthenia
     Dosage: () ()
     Route: 048
  2. AMOXICILLIN\CLAVULANIC ACID [Suspect]
     Active Substance: AMOXICILLIN\CLAVULANIC ACID
     Indication: Hyperpyrexia
     Dosage: () ()
     Route: 048
  3. CLARITHROMYCIN [Suspect]
     Active Substance: CLARITHROMYCIN
     Indication: Lung consolidation
     Route: 048
  4. PIPERACILLIN SODIUM\TAZOBACTAM SODIUM [Suspect]
     Active Substance: PIPERACILLIN SODIUM\TAZOBACTAM SODIUM
     Indication: Prophylaxis
     Route: 042
  5. FLUCONAZOLE [Concomitant]
     Active Substance: FLUCONAZOLE
     Indication: Pneumonia legionella
     Route: 042
  6. LEVOFLOXACIN [Suspect]
     Active Substance: LEVOFLOXACIN
     Indication: Pneumonia legionella
     Route: 042
  7. LEVOFLOXACIN [Suspect]
     Active Substance: LEVOFLOXACIN
     Indication: Pneumonia legionella
     Route: 042
  8. AMOXICILLIN\CLAVULANIC ACID [Suspect]
     Active Substance: AMOXICILLIN\CLAVULANIC ACID
     Indication: Headache
     Dosage: () ()
     Route: 048
  9. RIFAMPIN [Suspect]
     Active Substance: RIFAMPIN
     Indication: Pneumonia legionella
     Dosage: 900 MG, QD
  10. UNSPECIFIED INGREDIENT [Suspect]
     Active Substance: UNSPECIFIED INGREDIENT
     Indication: Lung consolidation
     Route: 042
  11. TAZOBACTAM [Suspect]
     Active Substance: TAZOBACTAM
     Indication: Lung consolidation
     Dosage: 13.5 GRAM DAILY

REACTIONS (18)
  - Pneumothorax [Recovered/Resolved]
  - Lung consolidation [Recovered/Resolved]
  - CD4/CD8 ratio decreased [Recovered/Resolved]
  - Acute respiratory distress syndrome [Recovered/Resolved]
  - Blood pH increased [Recovered/Resolved]
  - Oxygen saturation decreased [Recovered/Resolved]
  - Neutrophil count decreased [Recovered/Resolved]
  - Muscle fatigue [Recovered/Resolved]
  - Lymphocyte count decreased [Recovered/Resolved]
  - Eosinophil count increased [Recovered/Resolved]
  - PO2 decreased [Recovered/Resolved]
  - PCO2 decreased [Recovered/Resolved]
  - Eosinophilic pneumonia acute [Recovered/Resolved]
  - Pleural effusion [Recovered/Resolved]
  - Drug ineffective [Unknown]
  - Respiratory distress [Recovered/Resolved]
  - Pneumonia legionella [Recovered/Resolved]
  - Eosinophilia [Recovered/Resolved]
